FAERS Safety Report 9219798 (Version 1)
Quarter: 2013Q2

REPORT INFORMATION
  Report Type: Spontaneous
  Country: US (occurrence: None)
  Receive Date: 20130405
  Receipt Date: 20130405
  Transmission Date: 20140414
  Serious: Yes (Other)
  Sender: FDA-Public Use
  Company Number: 2013P1003690

PATIENT
  Age: 75 Year
  Sex: Female

DRUGS (3)
  1. PREDNISONE [Suspect]
     Indication: PULMONARY CONGESTION
     Dates: start: 2011, end: 20130316
  2. UNSPECIFIED ANTIBIOTIC [Concomitant]
  3. UNSPECIFIED INFUSION [Concomitant]

REACTIONS (3)
  - Dyspnoea [None]
  - Herpes zoster [None]
  - Cataract [None]
